FAERS Safety Report 8449871-2 (Version None)
Quarter: 2012Q2

REPORT INFORMATION
  Report Type: 
  Country: None (occurrence: None)
  Receive Date: 20120620
  Receipt Date: 20120613
  Transmission Date: 20120825
  Serious: Yes (Other)
  Sender: FDA-Public Use
  Company Number: DE-US-EMD SERONO, INC.-7140303

PATIENT
  Age: 48 Year
  Sex: Female

DRUGS (2)
  1. REBIF [Suspect]
     Route: 058
     Dates: start: 20100101
  2. REBIF [Suspect]
     Indication: MULTIPLE SCLEROSIS
     Route: 058
     Dates: start: 20030101

REACTIONS (10)
  - FATIGUE [None]
  - URTICARIA [None]
  - BALANCE DISORDER [None]
  - WEIGHT INCREASED [None]
  - INJECTION SITE INDURATION [None]
  - OPTIC NEURITIS [None]
  - INSOMNIA [None]
  - SENSORY DISTURBANCE [None]
  - DYSPNOEA [None]
  - DISTURBANCE IN ATTENTION [None]
